FAERS Safety Report 16290741 (Version 1)
Quarter: 2019Q2

REPORT INFORMATION
  Report Type: Spontaneous
  Country: US (occurrence: US)
  Receive Date: 20190509
  Receipt Date: 20190509
  Transmission Date: 20190711
  Serious: Yes (Death, Hospitalization)
  Sender: FDA-Public Use
  Company Number: US-MYLANLABS-2019M1043822

PATIENT
  Age: 50 Year
  Sex: Female

DRUGS (1)
  1. LIOTHYRONINE [Suspect]
     Active Substance: LIOTHYRONINE
     Indication: HYPOTHYROIDISM
     Route: 065

REACTIONS (8)
  - Cardiogenic shock [Fatal]
  - Brain injury [Fatal]
  - Bradycardia [Fatal]
  - Respiratory acidosis [Fatal]
  - Cardiac arrest [Fatal]
  - Drug abuse [Fatal]
  - Hyperthyroidism [Fatal]
  - Arrhythmia [Fatal]
